FAERS Safety Report 9431734 (Version 2)
Quarter: 2014Q1

REPORT INFORMATION
  Report Type: Report from Study
  Country: DE (occurrence: DE)
  Receive Date: 20130731
  Receipt Date: 20140306
  Transmission Date: 20141002
  Serious: Yes (Hospitalization)
  Sender: FDA-Public Use
  Company Number: DE-ROCHE-1254321

PATIENT
  Sex: Female

DRUGS (26)
  1. RITUXIMAB [Suspect]
     Indication: RHEUMATOID ARTHRITIS
     Route: 065
     Dates: start: 20080909
  2. RITUXIMAB [Suspect]
     Route: 065
     Dates: start: 20090716
  3. RITUXIMAB [Suspect]
     Route: 065
     Dates: start: 20100309
  4. RITUXIMAB [Suspect]
     Route: 065
     Dates: start: 20110201
  5. RITUXIMAB [Suspect]
     Route: 065
     Dates: end: 20111011
  6. METHOTREXATE [Suspect]
     Indication: PRODUCT USED FOR UNKNOWN INDICATION
     Route: 065
     Dates: start: 2003
  7. METHOTREXATE [Suspect]
     Route: 065
     Dates: start: 20071009
  8. METHOTREXATE [Suspect]
     Route: 065
     Dates: start: 20080108
  9. METHOTREXATE [Suspect]
     Route: 065
     Dates: start: 20080401
  10. METHOTREXATE [Suspect]
     Route: 065
     Dates: start: 20081118
  11. METHOTREXATE [Suspect]
     Route: 065
     Dates: start: 20090323
  12. METHOTREXATE [Suspect]
     Route: 065
     Dates: start: 20090916
  13. METHOTREXATE [Suspect]
     Route: 065
     Dates: start: 20100323
  14. METHOTREXATE [Suspect]
     Route: 065
     Dates: start: 20110217
  15. METHOTREXATE [Suspect]
     Route: 065
     Dates: start: 20110519
  16. METHOTREXATE [Suspect]
     Route: 065
     Dates: start: 20111011
  17. METHOTREXATE [Suspect]
     Route: 065
     Dates: start: 20120530
  18. METHOTREXATE [Suspect]
     Route: 065
     Dates: start: 20130109
  19. INFLIXIMAB [Suspect]
     Indication: RHEUMATOID ARTHRITIS
     Route: 065
  20. LEVOTHYROXINE [Concomitant]
     Route: 065
  21. PANTOPRAZOL [Concomitant]
     Route: 065
  22. CHOLECALCIFEROL [Concomitant]
     Route: 065
  23. FOLIC ACID [Concomitant]
     Route: 065
  24. CYANOCOBALAMIN [Concomitant]
     Route: 065
  25. ETORICOXIB [Concomitant]
     Route: 065
  26. DIMETICON [Concomitant]

REACTIONS (5)
  - Nausea [Not Recovered/Not Resolved]
  - Abdominal adhesions [Not Recovered/Not Resolved]
  - Abdominal distension [Not Recovered/Not Resolved]
  - Abdominal discomfort [Not Recovered/Not Resolved]
  - Grand mal convulsion [Unknown]
